FAERS Safety Report 6434455-8 (Version None)
Quarter: 2009Q4

REPORT INFORMATION
  Report Type: 
  Country: None (occurrence: None)
  Receive Date: 20091110
  Receipt Date: 20091029
  Transmission Date: 20100525
  Serious: Yes (Hospitalization)
  Sender: FDA-Public Use
  Company Number: CH-PFIZER INC-2009290824

PATIENT
  Age: 90 Year
  Sex: Female

DRUGS (6)
  1. ALDACTONE [Suspect]
     Dosage: 1 DF, UNK
     Route: 048
     Dates: end: 20090224
  2. ENATEC [Suspect]
     Dosage: 10 MG, UNK
     Route: 048
  3. NITRODERM [Suspect]
     Dosage: 10 MG, UNK
  4. ASPIRIN [Concomitant]
     Dosage: UNK
  5. DE-URSIL [Concomitant]
     Dosage: UNK
  6. LANTUS [Concomitant]
     Dosage: UNK

REACTIONS (1)
  - SYNCOPE [None]
